FAERS Safety Report 13471919 (Version 1)
Quarter: 2017Q2

REPORT INFORMATION
  Report Type: Spontaneous
  Country: US (occurrence: US)
  Receive Date: 20170424
  Receipt Date: 20170424
  Transmission Date: 20170830
  Serious: No
  Sender: FDA-Public Use
  Company Number: US-PFIZER INC-2017175009

PATIENT
  Age: 56 Year
  Sex: Male
  Weight: 113.4 kg

DRUGS (1)
  1. ADVIL [Suspect]
     Active Substance: IBUPROFEN
     Indication: GOUT
     Dosage: 600 MG, 4X/DAY (3 TABLETS EVERY SIX HOURS)

REACTIONS (5)
  - Rash pruritic [Recovering/Resolving]
  - Intentional product use issue [Unknown]
  - Urticaria [Recovering/Resolving]
  - Blister [Recovering/Resolving]
  - Product use in unapproved indication [Unknown]

NARRATIVE: CASE EVENT DATE: 20170408
